FAERS Safety Report 15885684 (Version 1)
Quarter: 2019Q1

REPORT INFORMATION
  Report Type: Report from Study
  Country: KR (occurrence: KR)
  Receive Date: 20190129
  Receipt Date: 20190129
  Transmission Date: 20190417
  Serious: Yes (Hospitalization)
  Sender: FDA-Public Use
  Company Number: KR-ASTRAZENECA-2019SE14468

PATIENT
  Age: 74 Year
  Sex: Female
  Weight: 156 kg

DRUGS (16)
  1. TAGRISSO [Suspect]
     Active Substance: OSIMERTINIB
     Indication: NON-SMALL CELL LUNG CANCER
     Route: 048
     Dates: start: 20180306, end: 20180423
  2. MATRIFEN [Concomitant]
     Active Substance: FENTANYL
     Indication: NON-SMALL CELL LUNG CANCER
     Dates: start: 20180306
  3. NIZAXID [Concomitant]
     Indication: GASTROINTESTINAL DISORDER PROPHYLAXIS
     Dates: start: 20180403
  4. XANAX [Concomitant]
     Active Substance: ALPRAZOLAM
     Indication: ANXIETY
     Dates: start: 20180417
  5. MORNIFLUMATE [Concomitant]
     Active Substance: MORNIFLUMATE
     Indication: INTERVERTEBRAL DISC DISORDER
     Dates: start: 20180403
  6. LIMAPROST [Concomitant]
     Active Substance: LIMAPROST
     Indication: INTERVERTEBRAL DISC DISORDER
     Dates: start: 20180403
  7. LOSARTAN. [Concomitant]
     Active Substance: LOSARTAN
     Indication: HYPERTENSION
     Dates: start: 20180814, end: 20181210
  8. ASPIRIN. [Concomitant]
     Active Substance: ASPIRIN
     Indication: HYPERTENSION
     Dates: start: 20170321, end: 20190111
  9. DEXILANT [Concomitant]
     Active Substance: DEXLANSOPRAZOLE
     Indication: GASTROINTESTINAL DISORDER PROPHYLAXIS
     Dates: start: 20171130
  10. TAGRISSO [Suspect]
     Active Substance: OSIMERTINIB
     Indication: NON-SMALL CELL LUNG CANCER
     Route: 048
     Dates: start: 20180503, end: 20190110
  11. MEGESTROL ACETATE. [Concomitant]
     Active Substance: MEGESTROL ACETATE
     Indication: MALNUTRITION
     Dates: start: 20180417
  12. PARAMACET [Concomitant]
     Active Substance: ACETAMINOPHEN\TRAMADOL
     Indication: NON-SMALL CELL LUNG CANCER
     Dates: start: 20180913
  13. NABUMETONE. [Concomitant]
     Active Substance: NABUMETONE
     Indication: INTERVERTEBRAL DISC DISORDER
     Dates: start: 20180403
  14. MAGMIL S [Concomitant]
     Indication: CONSTIPATION
     Dates: start: 20180403
  15. ALLEGRA [Concomitant]
     Active Substance: FEXOFENADINE HYDROCHLORIDE
     Indication: PRURITUS
     Dates: start: 20170209
  16. DICHLOZID [Concomitant]
     Indication: HYPERTENSION
     Dates: start: 20180814

REACTIONS (1)
  - Melaena [Recovered/Resolved]

NARRATIVE: CASE EVENT DATE: 201811
